FAERS Safety Report 17109401 (Version 2)
Quarter: 2020Q1

REPORT INFORMATION
  Report Type: Spontaneous
  Country: US (occurrence: US)
  Receive Date: 20191204
  Receipt Date: 20200120
  Transmission Date: 20200409
  Serious: No
  Sender: FDA-Public Use
  Company Number: US-009507513-1911USA011910

PATIENT
  Age: 78 Year
  Sex: Female

DRUGS (1)
  1. ALBUTEROL SULFATE. [Suspect]
     Active Substance: ALBUTEROL SULFATE
     Dosage: 1 TO 2 PUFF FOR 4 TO 6 HOURS AS NEEDED (ALSO REPORTED AS 2 EVERY 6 HOURS)
     Route: 048
     Dates: start: 20191126

REACTIONS (3)
  - Poor quality device used [Unknown]
  - Product quality issue [Unknown]
  - Incorrect route of product administration [Unknown]

NARRATIVE: CASE EVENT DATE: 20191126
